FAERS Safety Report 12952924 (Version 1)
Quarter: 2016Q4

REPORT INFORMATION
  Report Type: Spontaneous
  Country: TR (occurrence: TR)
  Receive Date: 20161117
  Receipt Date: 20161117
  Transmission Date: 20170207
  Serious: Yes (Hospitalization, Other)
  Sender: FDA-Public Use
  Company Number: TR-CIPLA LTD.-2016TR21088

PATIENT

DRUGS (3)
  1. LEVOTHYROXINE. [Suspect]
     Active Substance: LEVOTHYROXINE
     Dosage: 1.4 MG, UNK
     Route: 048
  2. QUETIAPINE. [Suspect]
     Active Substance: QUETIAPINE
     Dosage: 250 MG, UNK
     Route: 048
  3. BUPROPION. [Suspect]
     Active Substance: BUPROPION
     Dosage: 5.4 G, UNK
     Route: 048

REACTIONS (10)
  - Respiratory distress [Recovered/Resolved]
  - Generalised tonic-clonic seizure [Recovered/Resolved]
  - Hypotension [Recovered/Resolved]
  - Bradycardia [Unknown]
  - Blood thyroid stimulating hormone decreased [Unknown]
  - Intentional overdose [Unknown]
  - Suicidal ideation [Unknown]
  - Agitation [Recovered/Resolved]
  - Disorientation [Recovered/Resolved]
  - Tachycardia [Recovered/Resolved]
